FAERS Safety Report 7352251-4 (Version None)
Quarter: 2011Q1

REPORT INFORMATION
  Report Type: 
  Country: None (occurrence: None)
  Receive Date: 20110315
  Receipt Date: 20110309
  Transmission Date: 20110831
  Serious: Yes (Life-Threatening, Hospitalization)
  Sender: FDA-Public Use
  Company Number: US-NOVOPROD-321798

PATIENT
  Sex: Female
  Weight: 95.24 kg

DRUGS (12)
  1. IDEG PDS290 [Suspect]
     Indication: TYPE 2 DIABETES MELLITUS
     Dosage: 24 U, QD
     Route: 058
     Dates: start: 20091119, end: 20101116
  2. IDEG PDS290 [Suspect]
     Dosage: 20 U, QD
     Route: 058
     Dates: start: 20101202, end: 20110110
  3. IDEG PDS290 [Suspect]
     Dosage: UNK
     Dates: start: 20110211
  4. INSULATARD FLEXPEN HM(GE) [Suspect]
     Indication: TYPE 2 DIABETES MELLITUS
     Dosage: 20 U, QD
     Route: 058
     Dates: start: 20101117, end: 20101201
  5. ZOCOR [Concomitant]
     Indication: HYPERCHOLESTEROLAEMIA
     Dosage: 20 MG, QD
     Route: 048
     Dates: start: 20030101
  6. COREG [Concomitant]
     Indication: HYPERTENSION
     Dosage: 50 MG, QD
     Route: 048
     Dates: start: 20030101
  7. BENAZEPRIL HYDROCHLORIDE [Concomitant]
  8. FLOMAX [Concomitant]
     Dosage: 64 UNK, BID
  9. COREG [Concomitant]
     Dosage: 6.25 MG, BID
  10. COUMADIN [Concomitant]
     Indication: ATRIAL FIBRILLATION
     Dosage: 75 MG, QD
     Route: 048
     Dates: start: 20070101
  11. METFORMIN [Concomitant]
     Indication: TYPE 2 DIABETES MELLITUS
     Dosage: 2000 MG, QD
     Route: 048
     Dates: start: 20040101
  12. LASIX [Concomitant]
     Indication: HYPERTENSION
     Dosage: 40 MG, QD
     Route: 048
     Dates: start: 20030101

REACTIONS (7)
  - VOMITING [None]
  - NO THERAPEUTIC RESPONSE [None]
  - VENTRICULAR FIBRILLATION [None]
  - CARDIAC FAILURE CONGESTIVE [None]
  - HYPOAESTHESIA [None]
  - PARAESTHESIA [None]
  - PAPILLARY MUSCLE RUPTURE [None]
